FAERS Safety Report 9760473 (Version 1)
Quarter: 2013Q4

REPORT INFORMATION
  Report Type: Spontaneous
  Country: US (occurrence: US)
  Receive Date: 20131216
  Receipt Date: 20131216
  Transmission Date: 20140711
  Serious: No
  Sender: FDA-Public Use
  Company Number: US-BIOGENIDEC-2013BI093018

PATIENT
  Sex: Female

DRUGS (10)
  1. TECFIDERA [Suspect]
     Indication: MULTIPLE SCLEROSIS
     Route: 048
     Dates: start: 20130702
  2. TECFIDERA [Suspect]
     Indication: MULTIPLE SCLEROSIS
     Route: 048
  3. XANAX [Concomitant]
  4. AMBIEN [Concomitant]
  5. NUVIGIL [Concomitant]
  6. PAXIL [Concomitant]
  7. GABAPENTIN [Concomitant]
  8. BACLOFEN [Concomitant]
  9. MECLIZINE [Concomitant]
  10. ATIVAN [Concomitant]

REACTIONS (3)
  - Clostridium difficile infection [Unknown]
  - Abdominal discomfort [Unknown]
  - Diarrhoea [Unknown]
